FAERS Safety Report 20216536 (Version 1)
Quarter: 2021Q4

REPORT INFORMATION
  Report Type: Spontaneous
  Country: FR (occurrence: FR)
  Receive Date: 20211222
  Receipt Date: 20211222
  Transmission Date: 20220303
  Serious: Yes (Congenital Anomaly, Other)
  Sender: FDA-Public Use
  Company Number: FR-ABBVIE-21K-056-4208119-00

PATIENT
  Sex: Female
  Weight: 3.15 kg

DRUGS (2)
  1. VALPROATE SODIUM [Suspect]
     Active Substance: VALPROATE SODIUM
     Indication: Maternal exposure timing unspecified
     Route: 064
  2. TOPIRAMATE [Suspect]
     Active Substance: TOPIRAMATE
     Indication: Maternal exposure timing unspecified
     Route: 064

REACTIONS (7)
  - Cleft palate [Recovered/Resolved with Sequelae]
  - Poor feeding infant [Unknown]
  - Ventricular septal defect [Recovered/Resolved]
  - Arachnodactyly [Not Recovered/Not Resolved]
  - Dysmorphism [Not Recovered/Not Resolved]
  - Clinodactyly [Not Recovered/Not Resolved]
  - Foetal exposure during pregnancy [Unknown]
